FAERS Safety Report 21715682 (Version 2)
Quarter: 2022Q4

REPORT INFORMATION
  Report Type: Spontaneous
  Country: US (occurrence: US)
  Receive Date: 20221212
  Receipt Date: 20221214
  Transmission Date: 20230112
  Serious: No
  Sender: FDA-Public Use
  Company Number: US-002147023-NVSC2022US287175

PATIENT
  Sex: Male

DRUGS (1)
  1. TIMOLOL MALEATE [Suspect]
     Active Substance: TIMOLOL MALEATE
     Indication: Product used for unknown indication
     Dosage: UNK, BID (LAST 6 MONTHS BID), 5 ML, GEL FORMING
     Route: 065

REACTIONS (3)
  - Eye discharge [Recovered/Resolved]
  - Vision blurred [Recovered/Resolved]
  - Eyelid ptosis [Recovered/Resolved]
